FAERS Safety Report 4387685-3 (Version None)
Quarter: 2004Q2

REPORT INFORMATION
  Report Type: 
  Country: None (occurrence: None)
  Receive Date: 20040629
  Receipt Date: 20040629
  Transmission Date: 20050107
  Serious: Yes (Hospitalization)
  Sender: FDA-Public Use
  Company Number: None

PATIENT
  Age: 75 Year

DRUGS (6)
  1. COUMADIN [Suspect]
     Indication: CORONARY ARTERY DISEASE
  2. DARVOCET [Concomitant]
  3. BIAXIN [Concomitant]
  4. FLONASE [Concomitant]
  5. K-DUR 10 [Concomitant]
  6. DURATUSS [Concomitant]

REACTIONS (3)
  - ABDOMINAL PAIN [None]
  - HAEMATOMA [None]
  - INTERNATIONAL NORMALISED RATIO INCREASED [None]
